FAERS Safety Report 7682268-1 (Version None)
Quarter: 2011Q3

REPORT INFORMATION
  Report Type: 
  Country: None (occurrence: None)
  Receive Date: 20110805
  Receipt Date: 20110726
  Transmission Date: 20111222
  Serious: Yes (Other)
  Sender: FDA-Public Use
  Company Number: 2010SP028878

PATIENT
  Age: 18 Year
  Sex: Female
  Weight: 60 kg

DRUGS (1)
  1. DESOGESTREL AND ETHINYL ESTRADIOL [Suspect]
     Indication: CONTRACEPTION
     Dosage: QD;PO
     Route: 048
     Dates: start: 20080101

REACTIONS (6)
  - WRONG DRUG ADMINISTERED [None]
  - DRUG DOSE OMISSION [None]
  - DYSPNOEA [None]
  - HEADACHE [None]
  - CARDIOVASCULAR DISORDER [None]
  - BRONCHITIS [None]
